FAERS Safety Report 8835327 (Version 3)
Quarter: 2012Q4

REPORT INFORMATION
  Report Type: Report from Study
  Country: US (occurrence: US)
  Receive Date: 20121011
  Receipt Date: 20121112
  Transmission Date: 20130627
  Serious: Yes (Death)
  Sender: FDA-Public Use
  Company Number: US-ROCHE-1142601

PATIENT
  Sex: Female
  Weight: 75.36 kg

DRUGS (2)
  1. BEVACIZUMAB [Suspect]
     Indication: GLIOBLASTOMA
     Dosage: recent dose: 25/Sep/2012
     Route: 042
     Dates: start: 20090209
  2. EVEROLIMUS [Suspect]
     Indication: GLIOBLASTOMA
     Dosage: recent dose: 03/jul/2011
     Route: 048
     Dates: start: 20090209

REACTIONS (1)
  - Sudden death [Fatal]
